FAERS Safety Report 8251622-1 (Version None)
Quarter: 2012Q2

REPORT INFORMATION
  Report Type: 
  Country: None (occurrence: None)
  Receive Date: 20120402
  Receipt Date: 20120322
  Transmission Date: 20120825
  Serious: Yes (Hospitalization, Other)
  Sender: FDA-Public Use
  Company Number: US-ELI_LILLY_AND_COMPANY-US201203006907

PATIENT
  Sex: Male

DRUGS (3)
  1. HUMULIN R [Suspect]
     Dosage: UNK
  2. HUMULIN R [Suspect]
     Dosage: 3000 U, QD
  3. HUMULIN R [Suspect]
     Dosage: 2000 U, QD

REACTIONS (2)
  - BLOOD GLUCOSE INCREASED [None]
  - ASTHMA [None]
